FAERS Safety Report 6017752-X (Version None)
Quarter: 2008Q4

REPORT INFORMATION
  Report Type: 
  Country: None (occurrence: None)
  Receive Date: 20081223
  Receipt Date: 20081217
  Transmission Date: 20090506
  Serious: Yes (Hospitalization)
  Sender: FDA-Public Use
  Company Number: US-BIOGENIDEC-2008BI014988

PATIENT
  Age: 46 Year
  Sex: Female

DRUGS (17)
  1. TYSABRI [Suspect]
     Indication: MULTIPLE SCLEROSIS
     Route: 042
     Dates: start: 20070105
  2. GABAPENTIN [Concomitant]
     Indication: SENSORY DISTURBANCE
     Route: 048
  3. SYNTHROID [Concomitant]
     Indication: HYPOTHYROIDISM
     Route: 048
  4. SEROQUEL [Concomitant]
     Indication: BIPOLAR DISORDER
     Route: 048
  5. LAMICTAL [Concomitant]
     Indication: BIPOLAR DISORDER
     Route: 048
  6. CYMBALTA [Concomitant]
     Indication: SENSORY DISTURBANCE
     Route: 048
  7. ACIPHEX [Concomitant]
     Indication: GASTROOESOPHAGEAL REFLUX DISEASE
     Route: 048
  8. LORATADINE [Concomitant]
     Indication: SEASONAL ALLERGY
     Route: 048
  9. AMBIEN [Concomitant]
     Indication: INSOMNIA
     Route: 048
  10. OMEGA FISH OIL [Concomitant]
     Indication: SUPPLEMENTATION THERAPY
  11. VITAMIN B-12 [Concomitant]
     Indication: SUPPLEMENTATION THERAPY
  12. SELENIUM [Concomitant]
     Indication: SUPPLEMENTATION THERAPY
  13. CALCIUM [Concomitant]
     Indication: SUPPLEMENTATION THERAPY
  14. MAGNESIUM SULFATE [Concomitant]
     Indication: SUPPLEMENTATION THERAPY
  15. FLONASE [Concomitant]
     Route: 045
  16. PHENERGAN HCL [Concomitant]
     Indication: NAUSEA
     Route: 048
  17. NUVARING [Concomitant]
     Indication: UTERINE LEIOMYOMA

REACTIONS (2)
  - ANAEMIA [None]
  - UTERINE LEIOMYOMA [None]
